FAERS Safety Report 7924770-0 (Version None)
Quarter: 2011Q4

REPORT INFORMATION
  Report Type: 
  Country: None (occurrence: None)
  Receive Date: 20111118
  Receipt Date: 20110328
  Transmission Date: 20120403
  Serious: No
  Sender: FDA-Public Use
  Company Number: US-AMGEN-USASP2011016513

PATIENT
  Age: 31 Year
  Sex: Male
  Weight: 77 kg

DRUGS (5)
  1. NAPROXEN (ALEVE) [Concomitant]
  2. ENBREL [Suspect]
     Indication: PRODUCT USED FOR UNKNOWN INDICATION
     Dosage: 50 MG, QWK
  3. FOLIC ACID [Concomitant]
     Dosage: 1 MG, UNK
  4. DOXYCYCLINE [Concomitant]
     Dosage: 20 MG, UNK
  5. METHOTREXATE [Concomitant]

REACTIONS (1)
  - INJECTION SITE SWELLING [None]
